FAERS Safety Report 5320031-7 (Version None)
Quarter: 2007Q2

REPORT INFORMATION
  Report Type: 
  Country: None (occurrence: None)
  Receive Date: 20070209
  Receipt Date: 20061030
  Transmission Date: 20071010
  Serious: Yes (Other)
  Sender: FDA-Public Use
  Company Number: 200618966US

PATIENT
  Age: 69 Year
  Sex: Male

DRUGS (11)
  1. APIDRA [Suspect]
     Indication: DIABETES MELLITUS NON-INSULIN-DEPENDENT
     Dosage: VIA INSULIN PUMP, 0.5 U SC
     Route: 058
     Dates: start: 20060801
  2. APIDRA [Suspect]
     Indication: DIABETES MELLITUS NON-INSULIN-DEPENDENT
     Dosage: AC
     Dates: start: 20060801
  3. INSULIN [Suspect]
     Dates: start: 20060801
  4. ESOMEPRAZOLE MAGNESIUM [Concomitant]
  5. CETIRIZINE HYDROCHLORIDE (ZYRTEC /00884302/) [Concomitant]
  6. FUROSEMIDE  ISOSORBIDE MONONITRATE (IMDUR) [Concomitant]
  7. IPRATROPIUM BROMIDE, SALBUTAMOL SULFATE (COMBIVENT ATORVASTATIN CALCIU [Concomitant]
  8. MICARDIS [Concomitant]
  9. POTASSIUM ACETATE [Concomitant]
  10. ATENOLOL [Concomitant]
  11. VITAMINS [Concomitant]

REACTIONS (1)
  - HYPERGLYCAEMIA [None]
